FAERS Safety Report 11264279 (Version 1)
Quarter: 2015Q3

REPORT INFORMATION
  Report Type: Spontaneous
  Country: TR (occurrence: None)
  Receive Date: 20150709
  Receipt Date: 20150709
  Transmission Date: 20151125
  Serious: Yes (Other)
  Sender: FDA-Public Use
  Company Number: TR-LHC-2015080

PATIENT
  Age: 28 Year
  Sex: Male

DRUGS (1)
  1. OXYGEN (GENERIC) (OXYGEN) (INHALATION GAS) (OXYGEN) (VERUM) [Suspect]
     Active Substance: OXYGEN
     Indication: WOUND
     Dosage: HYPERBARIC OXYGEN THERAPY, INHALATION
     Route: 055

REACTIONS (4)
  - Pneumothorax [None]
  - Loss of consciousness [None]
  - Procedural complication [None]
  - Circulatory collapse [None]
